FAERS Safety Report 4405397-4 (Version None)
Quarter: 2004Q3

REPORT INFORMATION
  Report Type: 
  Country: None (occurrence: None)
  Receive Date: 20040723
  Receipt Date: 20030806
  Transmission Date: 20050211
  Serious: No
  Sender: FDA-Public Use
  Company Number: US-GLAXOSMITHKLINE-A0419792A

PATIENT
  Age: 82 Year
  Sex: Female

DRUGS (5)
  1. AVANDIA [Suspect]
     Dosage: 2MG PER DAY
     Route: 048
     Dates: start: 20030701, end: 20030806
  2. LISINOPRIL [Concomitant]
  3. ATENOLOL [Concomitant]
  4. SYNTHROID [Concomitant]
  5. COUMADIN [Concomitant]

REACTIONS (4)
  - CHILLS [None]
  - FEELING COLD [None]
  - PYREXIA [None]
  - TREMOR [None]
